FAERS Safety Report 25463462 (Version 2)
Quarter: 2025Q2

REPORT INFORMATION
  Report Type: Spontaneous
  Country: ES (occurrence: ES)
  Receive Date: 20250620
  Receipt Date: 20250626
  Transmission Date: 20250717
  Serious: Yes (Other)
  Sender: ELI LILLY AND COMPANY
  Company Number: ES-ELI_LILLY_AND_COMPANY-ES202506015940

PATIENT
  Age: 65 Year
  Sex: Male

DRUGS (1)
  1. MOUNJARO [Suspect]
     Active Substance: TIRZEPATIDE
     Indication: Weight control
     Route: 065

REACTIONS (5)
  - Visual acuity reduced [Unknown]
  - Optic neuropathy [Unknown]
  - Hallucination, visual [Unknown]
  - Hemianopia homonymous [Unknown]
  - Toxicity to various agents [Unknown]
